FAERS Safety Report 4740188-6 (Version None)
Quarter: 2005Q3

REPORT INFORMATION
  Report Type: 
  Country: None (occurrence: None)
  Receive Date: 20050810
  Receipt Date: 20050214
  Transmission Date: 20060218
  Serious: No
  Sender: FDA-Public Use
  Company Number: US-GLAXOSMITHKLINE-A0545748A

PATIENT
  Age: 47 Year
  Sex: Female

DRUGS (2)
  1. PAXIL [Suspect]
     Indication: MIGRAINE PROPHYLAXIS
     Dosage: 40MG IN THE MORNING
  2. SSRI [Concomitant]
     Indication: MIGRAINE PROPHYLAXIS

REACTIONS (3)
  - GLOSSODYNIA [None]
  - MASTICATION DISORDER [None]
  - OBSESSIVE-COMPULSIVE DISORDER [None]
